FAERS Safety Report 25479171 (Version 1)
Quarter: 2025Q2

REPORT INFORMATION
  Report Type: Spontaneous
  Country: CN (occurrence: CN)
  Receive Date: 20250625
  Receipt Date: 20250625
  Transmission Date: 20250716
  Serious: Yes (Hospitalization)
  Sender: BAYER HEALTHCARE PHARMACEUTICALS INC.
  Company Number: CN-BAYER-2025A084383

PATIENT
  Age: 33 Year
  Sex: Female
  Weight: 43 kg

DRUGS (2)
  1. AVELOX [Suspect]
     Active Substance: MOXIFLOXACIN HYDROCHLORIDE
     Indication: Upper respiratory tract infection
     Dosage: 0.4 G, QD
     Route: 041
     Dates: start: 20250321, end: 20250321
  2. AVELOX [Suspect]
     Active Substance: MOXIFLOXACIN HYDROCHLORIDE
     Indication: Adrenal mass

REACTIONS (7)
  - Quadriplegia [Recovering/Resolving]
  - Dizziness [Recovering/Resolving]
  - Dyspnoea [Recovering/Resolving]
  - Hypoaesthesia [Recovering/Resolving]
  - Palpitations [Recovering/Resolving]
  - Product use in unapproved indication [None]
  - Product prescribing issue [None]

NARRATIVE: CASE EVENT DATE: 20250321
